FAERS Safety Report 8037776-0 (Version None)
Quarter: 2012Q1

REPORT INFORMATION
  Report Type: 
  Country: None (occurrence: None)
  Receive Date: 20120111
  Receipt Date: 20120102
  Transmission Date: 20120608
  Serious: Yes (Death)
  Sender: FDA-Public Use
  Company Number: US-BAYER-2012-002244

PATIENT
  Age: 39 Year
  Sex: Female

DRUGS (2)
  1. DIPHENHYDRAMINE HCL [Suspect]
  2. METHAMPHETAMINE HYDROCHLORIDE [Suspect]

REACTIONS (1)
  - TOXICITY TO VARIOUS AGENTS [None]
